FAERS Safety Report 10144692 (Version 1)
Quarter: 2014Q2

REPORT INFORMATION
  Report Type: Spontaneous
  Country: US (occurrence: US)
  Receive Date: 20140430
  Receipt Date: 20140430
  Transmission Date: 20141212
  Serious: Yes (Hospitalization)
  Sender: FDA-Public Use
  Company Number: US-SANOFI-AVENTIS-2013SA063189

PATIENT
  Sex: Female

DRUGS (1)
  1. ENOXAPARIN SODIUM - WINTHROP [Suspect]
     Dosage: DOSE:100 MILLIGRAM(S)/MILLILITRE

REACTIONS (1)
  - Hypersensitivity [Unknown]
